FAERS Safety Report 9988634 (Version 1)
Quarter: 2014Q1

REPORT INFORMATION
  Report Type: Spontaneous
  Country: US (occurrence: US)
  Receive Date: 20140310
  Receipt Date: 20140310
  Transmission Date: 20141002
  Serious: Yes (Other)
  Sender: FDA-Public Use
  Company Number: US-009507513-1403USA001271

PATIENT
  Sex: Female

DRUGS (1)
  1. DULERA [Suspect]
     Indication: ASTHMA
     Dosage: UNK
     Route: 055
     Dates: start: 201402

REACTIONS (2)
  - Aphonia [Not Recovered/Not Resolved]
  - Dysphonia [Not Recovered/Not Resolved]
